FAERS Safety Report 16852459 (Version 1)
Quarter: 2019Q3

REPORT INFORMATION
  Report Type: Spontaneous
  Country: US (occurrence: US)
  Receive Date: 20190925
  Receipt Date: 20190925
  Transmission Date: 20191005
  Serious: No
  Sender: FDA-Public Use
  Company Number: US-ASSERTIO THERAPEUTICS, INC.-US-2018DEP001977

PATIENT
  Sex: Female
  Weight: 61.22 kg

DRUGS (2)
  1. GRALISE [Suspect]
     Active Substance: GABAPENTIN
     Dosage: 300 MG, QD (FOR THE FINAL 2-3 EVENINGS)
     Dates: start: 2018, end: 2018
  2. GRALISE [Suspect]
     Active Substance: GABAPENTIN
     Indication: COMPLEX REGIONAL PAIN SYNDROME
     Dosage: 600 MG, QD (IN THE EVENING WITH FOOD)
     Route: 065
     Dates: start: 2018, end: 2018

REACTIONS (2)
  - Product use in unapproved indication [Unknown]
  - Drug dose titration not performed [Unknown]

NARRATIVE: CASE EVENT DATE: 2018
